FAERS Safety Report 5835116-6 (Version None)
Quarter: 2008Q3

REPORT INFORMATION
  Report Type: 
  Country: None (occurrence: None)
  Receive Date: 20080806
  Receipt Date: 20080729
  Transmission Date: 20090109
  Serious: Yes (Hospitalization)
  Sender: FDA-Public Use
  Company Number: US-JNJFOC-20080707362

PATIENT
  Sex: Female
  Weight: 68.04 kg

DRUGS (6)
  1. INVEGA [Suspect]
     Indication: DRUG USE FOR UNKNOWN INDICATION
     Route: 048
  2. TOPAMAX [Suspect]
     Indication: SOMNAMBULISM
     Route: 048
  3. WELLBUTRIN XL [Concomitant]
     Indication: DEPRESSION
  4. KEFLEX [Concomitant]
     Indication: TOOTH INFECTION
  5. MOTRIN [Concomitant]
     Indication: TOOTH INFECTION
  6. LIPITOR [Concomitant]
     Indication: BLOOD CHOLESTEROL INCREASED

REACTIONS (2)
  - FALL [None]
  - LOWER LIMB FRACTURE [None]
